FAERS Safety Report 22349632 (Version 1)
Quarter: 2023Q2

REPORT INFORMATION
  Report Type: Spontaneous
  Country: US (occurrence: None)
  Receive Date: 20230519
  Receipt Date: 20230519
  Transmission Date: 20230721
  Serious: Yes (Death)
  Sender: FDA-Public Use
  Company Number: None

PATIENT
  Age: 79 Year
  Sex: Female
  Weight: 73.94 kg

DRUGS (7)
  1. KEYTRUDA [Suspect]
     Active Substance: PEMBROLIZUMAB
     Indication: Brain neoplasm malignant
     Dosage: FREQUENCY : EVERY 12 HOURS;?
     Route: 042
     Dates: start: 202207
  2. CARBIDOPA\LEVODOPA [Concomitant]
     Active Substance: CARBIDOPA\LEVODOPA
  3. KEPPRA [Concomitant]
     Active Substance: LEVETIRACETAM
  4. LIPITOR [Concomitant]
     Active Substance: ATORVASTATIN CALCIUM
  5. NEUPRO [Concomitant]
     Active Substance: ROTIGOTINE
  6. PROPRANOLOL [Concomitant]
     Active Substance: PROPRANOLOL HYDROCHLORIDE
  7. ZOFRAN ODT [Concomitant]
     Active Substance: ONDANSETRON HYDROCHLORIDE

REACTIONS (1)
  - Death [None]

NARRATIVE: CASE EVENT DATE: 20230504
